FAERS Safety Report 19158753 (Version 1)
Quarter: 2021Q2

REPORT INFORMATION
  Report Type: Spontaneous
  Country: US (occurrence: US)
  Receive Date: 20210420
  Receipt Date: 20210420
  Transmission Date: 20210717
  Serious: Yes (Other)
  Sender: FDA-Public Use
  Company Number: US-PFIZER INC-2021216276

PATIENT
  Age: 62 Year
  Sex: Male

DRUGS (3)
  1. BUPIVACAINE HCL [Suspect]
     Active Substance: BUPIVACAINE HYDROCHLORIDE
     Indication: ANAESTHETIC OPHTHALMIC PROCEDURE
     Dosage: 50:50 MIXTURE OF 2% LIDOCAINE AND 0.5% BUPIVACAINE HYDROCHLORIDE
     Route: 056
  2. LIDOCAINE HCL [Suspect]
     Active Substance: LIDOCAINE HYDROCHLORIDE
     Indication: ANAESTHETIC OPHTHALMIC PROCEDURE
     Dosage: 50:50 MIXTURE OF 2% LIDOCAINE AND 0.5% BUPIVACAINE HYDROCHLORIDE
     Route: 056
  3. HYALURONIDASE [Concomitant]
     Active Substance: HYALURONIDASE
     Dosage: 150 USP UNITS/ 10 ML
     Route: 056

REACTIONS (2)
  - Incorrect route of product administration [Recovered/Resolved]
  - Cavernous sinus syndrome [Recovered/Resolved]
